FAERS Safety Report 9432248 (Version 1)
Quarter: 2013Q3

REPORT INFORMATION
  Report Type: Spontaneous
  Country: US (occurrence: None)
  Receive Date: 20130729
  Receipt Date: 20130729
  Transmission Date: 20140515
  Serious: Yes (Other)
  Sender: FDA-Public Use
  Company Number: 1307-925

PATIENT
  Age: 58 Year
  Sex: Female

DRUGS (1)
  1. EYLEA (AFLIBERCEPT) (AFLIBERCEPT) [Suspect]

REACTIONS (3)
  - Endophthalmitis [None]
  - Lens extraction [None]
  - Culture positive [None]
